FAERS Safety Report 6724352-2 (Version None)
Quarter: 2010Q2

REPORT INFORMATION
  Report Type: 
  Country: None (occurrence: None)
  Receive Date: 20100513
  Receipt Date: 20100429
  Transmission Date: 20101027
  Serious: Yes (Other)
  Sender: FDA-Public Use
  Company Number: US-BAYER-201016613NA

PATIENT
  Age: 52 Year
  Sex: Female
  Weight: 94 kg

DRUGS (12)
  1. MAGNEVIST [Suspect]
     Indication: NUCLEAR MAGNETIC RESONANCE IMAGING BRAIN
     Dosage: TOTAL DAILY DOSE: 20 ML
     Dates: start: 20020403, end: 20020403
  2. OMNISCAN [Suspect]
     Indication: IMAGING PROCEDURE
  3. OPTIMARK [Suspect]
     Indication: IMAGING PROCEDURE
  4. MULTIHANCE [Suspect]
     Indication: IMAGING PROCEDURE
  5. PROHANCE [Suspect]
     Indication: IMAGING PROCEDURE
  6. SENSIPAR [Concomitant]
     Dosage: TOTAL DAILY DOSE: 60 MG
     Route: 048
  7. RENAL CAPS [Concomitant]
     Indication: VITAMIN SUPPLEMENTATION
     Route: 048
  8. EPOGEN [Concomitant]
     Indication: ANAEMIA
     Dosage: AS NEEDED FOR DIALYSIS
  9. IRON SUPPLEMENTS [Concomitant]
     Indication: ANAEMIA PROPHYLAXIS
  10. PROCRIT [Concomitant]
     Dates: start: 20021015
  11. RENAGEL [Concomitant]
     Dates: start: 20021014
  12. COUMADIN [Concomitant]

REACTIONS (15)
  - DEFORMITY [None]
  - INDURATION [None]
  - MOBILITY DECREASED [None]
  - MUSCLE CONTRACTURE [None]
  - MUSCLE TIGHTNESS [None]
  - MUSCULAR WEAKNESS [None]
  - MUSCULOSKELETAL STIFFNESS [None]
  - NEPHROGENIC SYSTEMIC FIBROSIS [None]
  - OEDEMA [None]
  - PAIN [None]
  - PAIN IN EXTREMITY [None]
  - SCAR [None]
  - SKIN DISORDER [None]
  - SKIN FIBROSIS [None]
  - SKIN TIGHTNESS [None]
